FAERS Safety Report 24728048 (Version 1)
Quarter: 2024Q4

REPORT INFORMATION
  Report Type: Report from Study
  Country: US (occurrence: US)
  Receive Date: 20241212
  Receipt Date: 20241212
  Transmission Date: 20250115
  Serious: No
  Sender: SANDOZ
  Company Number: US-SANDOZ-SDZ2024US100080

PATIENT
  Sex: Male

DRUGS (2)
  1. OMNITROPE [Suspect]
     Active Substance: SOMATROPIN
     Indication: Hypopituitarism
     Dosage: 1.8 MG, QD (10 MG / 1.5 ML)
     Route: 058
  2. OMNITROPE [Suspect]
     Active Substance: SOMATROPIN
     Indication: Hypopituitarism
     Dosage: 1.8 MG, QD (10 MG / 1.5 ML)
     Route: 058

REACTIONS (3)
  - Injection site pain [Unknown]
  - Device difficult to use [Unknown]
  - Wrong technique in device usage process [Unknown]
